FAERS Safety Report 10024122 (Version 1)
Quarter: 2014Q1

REPORT INFORMATION
  Report Type: Spontaneous
  Country: US (occurrence: US)
  Receive Date: 20140320
  Receipt Date: 20140320
  Transmission Date: 20141002
  Serious: Yes (Hospitalization)
  Sender: FDA-Public Use
  Company Number: PHEH2014US005166

PATIENT
  Sex: Female

DRUGS (11)
  1. RITALIN [Suspect]
     Indication: NARCOLEPSY
     Dosage: UNK UKN, UNK
  2. RITALIN [Suspect]
     Dosage: 20MG, TWO TABLETS, TID
  3. COUMADIN//COUMARIN [Concomitant]
     Dosage: UNK UKN, UNK
  4. VENTOLIN//SALBUTAMOL [Concomitant]
     Dosage: UNK UKN, UNK
  5. Z-PAK [Concomitant]
     Dosage: UNK UKN, UNK
  6. TRIAZOLAM [Concomitant]
     Dosage: UNK UKN, UNK
  7. METRONIDAZOLE [Concomitant]
     Dosage: UNK UKN, UNK
  8. PROTEX [Concomitant]
     Dosage: UNK UKN, UNK
  9. METHADONE [Concomitant]
     Dosage: UNK UKN, UNK
  10. FUROSEMIDE [Concomitant]
     Dosage: UNK UKN, UNK
  11. PRINIVIL [Concomitant]
     Dosage: UNK UKN, UNK

REACTIONS (6)
  - Haemorrhage [Unknown]
  - Malaise [Unknown]
  - Hearing impaired [Unknown]
  - Rosacea [Unknown]
  - Musculoskeletal discomfort [Unknown]
  - Contusion [Unknown]
